FAERS Safety Report 8556413-X (Version None)
Quarter: 2012Q3

REPORT INFORMATION
  Report Type: 
  Country: None (occurrence: None)
  Receive Date: 20120801
  Receipt Date: 20120727
  Transmission Date: 20120928
  Serious: Yes (Hospitalization, Other)
  Sender: FDA-Public Use
  Company Number: PHHY2012BE057077

PATIENT
  Sex: Male

DRUGS (11)
  1. EXJADE [Suspect]
     Dosage: 1000 MG, UNK
  2. ACETAMINOPHEN [Concomitant]
  3. AMOXICILLIN AND CLAVULANATE POTASSIUM [Concomitant]
  4. EXJADE [Suspect]
     Indication: HAEMOCHROMATOSIS
     Dosage: 1250 MG, UNK
     Dates: start: 20120328, end: 20120418
  5. ALDACTONE [Concomitant]
     Dosage: 12.5 MG, QD
  6. AVELOX [Concomitant]
     Dates: start: 20120419
  7. LEVOFLOXACIN [Concomitant]
  8. BUMETANIDE [Concomitant]
     Dosage: 1 MG, QD
  9. DIURETICS [Concomitant]
  10. METOPROLOL SUCCINATE [Concomitant]
     Dosage: 50 MG, QD
  11. ASPIRIN [Concomitant]
     Dosage: 80 MG, QD

REACTIONS (16)
  - CHOLANGITIS [None]
  - FATIGUE [None]
  - JAUNDICE [None]
  - DECREASED APPETITE [None]
  - HAEMANGIOMA [None]
  - HEPATIC ENZYME INCREASED [None]
  - PYREXIA [None]
  - CHROMATURIA [None]
  - HEPATOTOXICITY [None]
  - HEPATITIS [None]
  - BLOOD BILIRUBIN INCREASED [None]
  - OEDEMA [None]
  - PLEURAL EFFUSION [None]
  - MUSCLE TIGHTNESS [None]
  - WHEEZING [None]
  - VOMITING [None]
